FAERS Safety Report 15459738 (Version 1)
Quarter: 2018Q3

REPORT INFORMATION
  Report Type: Spontaneous
  Country: US (occurrence: US)
  Receive Date: 20180928
  Receipt Date: 20180928
  Transmission Date: 20181010
  Serious: No
  Sender: FDA-Public Use
  Company Number: None

PATIENT
  Age: 69 Year
  Sex: Female
  Weight: 76.66 kg

DRUGS (1)
  1. STELARA [Suspect]
     Active Substance: USTEKINUMAB
     Indication: PSORIATIC ARTHROPATHY
     Dosage: INJE9T 50MG SUBCUTANEOUSLY ON DAY 0 AND DAY 28    AS DIRECTED
     Route: 058
     Dates: start: 201710

REACTIONS (1)
  - Respiratory tract infection [None]
